FAERS Safety Report 17606982 (Version 1)
Quarter: 2020Q1

REPORT INFORMATION
  Report Type: Spontaneous
  Country: US (occurrence: US)
  Receive Date: 20200331
  Receipt Date: 20200331
  Transmission Date: 20200409
  Serious: Yes (Other)
  Sender: FDA-Public Use
  Company Number: US-BAYER-2020-051805

PATIENT
  Age: 57 Year
  Sex: Female

DRUGS (1)
  1. BAIN DE SOLEIL ORANGE GELEE SPF 4 [Suspect]
     Active Substance: OCTINOXATE
     Indication: THERAPEUTIC SKIN CARE TOPICAL
     Dosage: ;I WAS USING IT BASED OF THE LABELED DIRE DOSE
     Route: 061
     Dates: end: 20200326

REACTIONS (1)
  - Drug dependence [Unknown]

NARRATIVE: CASE EVENT DATE: 2018
